FAERS Safety Report 18559796 (Version 1)
Quarter: 2020Q4

REPORT INFORMATION
  Report Type: Spontaneous
  Country: HU (occurrence: HU)
  Receive Date: 20201130
  Receipt Date: 20201130
  Transmission Date: 20210114
  Serious: Yes (Death, Hospitalization, Other)
  Sender: FDA-Public Use
  Company Number: HU-PFIZER INC-2020466540

PATIENT
  Age: 77 Year
  Sex: Male

DRUGS (19)
  1. GLYCERYL TRINITRATE [Concomitant]
     Active Substance: NITROGLYCERIN
     Dosage: 2.6 MG, 2X/DAY
  2. ACETYLSALICYLIC ACID [Concomitant]
     Active Substance: ASPIRIN
     Dosage: 100 MG
  3. ALPRAZOLAM. [Concomitant]
     Active Substance: ALPRAZOLAM
     Dosage: 0.5 MG, 3X/DAY
  4. VINPOCETIN [Concomitant]
     Active Substance: VINPOCETINE
     Dosage: 1 DF, 3X/DAY
  5. TEGRETOL XR [Concomitant]
     Active Substance: CARBAMAZEPINE
     Dosage: 1 DF, 3X/DAY
  6. MELOXICAM ZENTIVA [Concomitant]
     Dosage: UNK
  7. LYRICA [Suspect]
     Active Substance: PREGABALIN
     Dosage: 600 MG, DAILY
  8. AMLODIPINE BESILATE/INDAPAMIDE/PERINDOPRIL ERBUMINE [Concomitant]
  9. PENTOXIFILLINE [Concomitant]
     Active Substance: PENTOXIFYLLINE
     Dosage: 400 MG, 2X/DAY
  10. TRENTAL [Concomitant]
     Active Substance: PENTOXIFYLLINE
     Dosage: 1 DF, 3X/DAY
  11. THIOGAMMA [Concomitant]
     Active Substance: .ALPHA.-LIPOIC ACID
     Dosage: 600 MG, 1X/DAY, IN THE MORNING
     Route: 048
     Dates: start: 20180125
  12. DIPROPHOS [Concomitant]
     Active Substance: BETAMETHASONE DIPROPIONATE\BETAMETHASONE SODIUM PHOSPHATE
     Dosage: UNK
  13. LANSOPRAZOLE. [Concomitant]
     Active Substance: LANSOPRAZOLE
     Dosage: 30 MG
  14. PERINDOPRIL [Concomitant]
     Active Substance: PERINDOPRIL
     Dosage: 8 MG, 1X/DAY IN THE EVENING
  15. DULOXETINE. [Concomitant]
     Active Substance: DULOXETINE
     Dosage: 60 MG, 1X/DAY IN THE EVENING
  16. MILGAMMA N [BENFOTIAMINE;CYANOCOBALAMIN;PYRIDOXINE HYDROCHLORIDE] [Concomitant]
     Dosage: UNK
  17. MILGAMMA N [BENFOTIAMINE;CYANOCOBALAMIN;PYRIDOXINE HYDROCHLORIDE] [Concomitant]
  18. LYRICA [Suspect]
     Active Substance: PREGABALIN
     Dosage: 150 MG, 2X/DAY
     Dates: start: 20180125
  19. DUCILTIA [Concomitant]
     Active Substance: DULOXETINE
     Dosage: 60 MG, 1X/DAY, IN THE EVENING
     Dates: start: 20180125

REACTIONS (9)
  - Condition aggravated [Unknown]
  - Cerebral infarction [Unknown]
  - Essential hypertension [Unknown]
  - Pain [Not Recovered/Not Resolved]
  - Hypoaesthesia [Not Recovered/Not Resolved]
  - Disorientation [Unknown]
  - Chronic kidney disease [Unknown]
  - Completed suicide [Fatal]
  - Poor peripheral circulation [Not Recovered/Not Resolved]

NARRATIVE: CASE EVENT DATE: 20180128
